FAERS Safety Report 10080936 (Version 2)
Quarter: 2014Q2

REPORT INFORMATION
  Report Type: Spontaneous
  Country: BR (occurrence: BR)
  Receive Date: 20140416
  Receipt Date: 20140430
  Transmission Date: 20141212
  Serious: Yes (Other)
  Sender: FDA-Public Use
  Company Number: BR-SA-2014SA046935

PATIENT
  Sex: Male

DRUGS (1)
  1. ALLEGRA PEDIATRICO [Suspect]
     Indication: COUGH
     Dosage: 1.5 ML IN MORNING AND AT NIGHT FOR 1 WEEK
     Route: 065
     Dates: start: 20140408, end: 20140415

REACTIONS (1)
  - Choking [Recovered/Resolved]
